FAERS Safety Report 7388227-0 (Version None)
Quarter: 2011Q1

REPORT INFORMATION
  Report Type: 
  Country: None (occurrence: None)
  Receive Date: 20110324
  Receipt Date: 20110309
  Transmission Date: 20110831
  Serious: Yes (Other)
  Sender: FDA-Public Use
  Company Number: THQ2011A01315

PATIENT
  Age: 72 Year
  Sex: Female

DRUGS (4)
  1. ENBREL [Suspect]
     Dosage: 25 MG (25 MG,2 IN 1 WK) SUBCUTANEOUS
     Route: 058
     Dates: start: 20031013
  2. LANSOPRAZOLE [Suspect]
  3. LANSOPRAZOLE [Concomitant]
  4. CO-DYRAMOL (PARACETAMOL DIHYDROCODEINE BITARTRATE) [Concomitant]

REACTIONS (1)
  - DIVERTICULUM [None]
